FAERS Safety Report 24764799 (Version 1)
Quarter: 2024Q4

REPORT INFORMATION
  Report Type: Spontaneous
  Country: US (occurrence: US)
  Receive Date: 20241223
  Receipt Date: 20241223
  Transmission Date: 20250114
  Serious: No
  Sender: TEVA
  Company Number: US-TEVA-VS-3272421

PATIENT
  Age: 86 Year
  Sex: Female

DRUGS (2)
  1. CLONIDINE HYDROCHLORIDE [Suspect]
     Active Substance: CLONIDINE HYDROCHLORIDE
     Indication: Hypertension
     Dosage: STARTED THREE WEEKS AGO
     Route: 062
     Dates: start: 2024
  2. CLONIDINE HYDROCHLORIDE [Suspect]
     Active Substance: CLONIDINE HYDROCHLORIDE
     Route: 062
     Dates: start: 2024

REACTIONS (4)
  - Illness [Recovered/Resolved]
  - Circumstance or information capable of leading to medication error [Unknown]
  - Malaise [Recovered/Resolved]
  - Drug hypersensitivity [Not Recovered/Not Resolved]
